FAERS Safety Report 13575494 (Version 1)
Quarter: 2017Q2

REPORT INFORMATION
  Report Type: Spontaneous
  Country: FR (occurrence: FR)
  Receive Date: 20170524
  Receipt Date: 20170524
  Transmission Date: 20170830
  Serious: Yes (Hospitalization)
  Sender: FDA-Public Use
  Company Number: FR-009507513-1705FRA008036

PATIENT
  Age: 62 Year
  Sex: Male

DRUGS (10)
  1. LEXOMIL [Concomitant]
     Active Substance: BROMAZEPAM
  2. LANSOPRAZOLE. [Concomitant]
     Active Substance: LANSOPRAZOLE
  3. MEDROL [Concomitant]
     Active Substance: METHYLPREDNISOLONE
  4. SERESTA [Concomitant]
     Active Substance: OXAZEPAM
  5. INNOHEP [Concomitant]
     Active Substance: TINZAPARIN SODIUM
  6. URBANYL [Concomitant]
     Active Substance: CLOBAZAM
  7. TEMODAL [Suspect]
     Active Substance: TEMOZOLOMIDE
     Indication: GLIOBLASTOMA
     Dosage: 150MG, QD (75 MG X2 QD)
     Route: 048
     Dates: start: 20170420, end: 20170427
  8. DIFFU-K [Concomitant]
     Active Substance: POTASSIUM CHLORIDE
  9. PYRIDOXINE (+) THIAMINE [Concomitant]
  10. ONDANSETRON [Concomitant]
     Active Substance: ONDANSETRON

REACTIONS (3)
  - Cholestasis [Not Recovered/Not Resolved]
  - Condition aggravated [Not Recovered/Not Resolved]
  - Hepatocellular injury [Not Recovered/Not Resolved]

NARRATIVE: CASE EVENT DATE: 201704
